FAERS Safety Report 13320847 (Version 1)
Quarter: 2017Q1

REPORT INFORMATION
  Report Type: Spontaneous
  Country: US (occurrence: US)
  Receive Date: 20170310
  Receipt Date: 20170310
  Transmission Date: 20170428
  Serious: No
  Sender: FDA-Public Use
  Company Number: US-ALK ABELLO INC-1064106

PATIENT
  Age: 31 Year
  Sex: Male

DRUGS (2)
  1. MIXTURE OF STANDARDIZED MITES [Concomitant]
     Active Substance: DERMATOPHAGOIDES FARINAE\DERMATOPHAGOIDES PTERONYSSINUS
     Route: 058
  2. ASPERGILLUS FUMIGATUS. [Suspect]
     Active Substance: ASPERGILLUS FUMIGATUS
     Indication: ALLERGY TO IMMUNOGLOBULIN THERAPY
     Route: 058
     Dates: start: 20170216

REACTIONS (3)
  - Rash [None]
  - Erythema [None]
  - Skin lesion [None]

NARRATIVE: CASE EVENT DATE: 20170217
